FAERS Safety Report 21841137 (Version 1)
Quarter: 2023Q1

REPORT INFORMATION
  Report Type: Report from Study
  Country: US (occurrence: US)
  Receive Date: 20230110
  Receipt Date: 20230110
  Transmission Date: 20230417
  Serious: Yes (Hospitalization)
  Sender: FDA-Public Use
  Company Number: US-ABBVIE-4261463

PATIENT
  Sex: Male

DRUGS (4)
  1. VENCLEXTA [Suspect]
     Active Substance: VENETOCLAX
     Indication: Mantle cell lymphoma
     Dosage: FORM STRENGTH: 10 MILLIGRAM
     Route: 048
  2. VENCLEXTA [Suspect]
     Active Substance: VENETOCLAX
     Indication: Mantle cell lymphoma
     Dosage: FORM STRENGTH: 50 MILLIGRAM
     Route: 048
  3. VENCLEXTA [Suspect]
     Active Substance: VENETOCLAX
     Indication: Mantle cell lymphoma
     Dosage: FORM STRENGTH: 100 MILLIGRAM
     Route: 048
  4. VENCLEXTA [Suspect]
     Active Substance: VENETOCLAX
     Indication: Mantle cell lymphoma
     Dosage: FORM STRENGTH: 100 MILLIGRAM
     Route: 048

REACTIONS (3)
  - Hospitalisation [Unknown]
  - Nausea [Unknown]
  - Feeling abnormal [Unknown]
